FAERS Safety Report 9459028 (Version 1)
Quarter: 2013Q3

REPORT INFORMATION
  Report Type: Spontaneous
  Country: US (occurrence: US)
  Receive Date: 20130814
  Receipt Date: 20130814
  Transmission Date: 20140515
  Serious: No
  Sender: FDA-Public Use
  Company Number: US-PFIZER INC-2013235716

PATIENT
  Age: 66 Year
  Sex: Female
  Weight: 88.44 kg

DRUGS (2)
  1. ADVIL [Suspect]
     Indication: HEADACHE
     Dosage: UNK, AS NEEDED
     Dates: start: 2012, end: 20130811
  2. ADVIL [Suspect]
     Indication: ARTHRALGIA

REACTIONS (2)
  - Expired drug administered [Unknown]
  - Drug ineffective [Unknown]
